FAERS Safety Report 5782454-1 (Version None)
Quarter: 2008Q2

REPORT INFORMATION
  Report Type: 
  Country: None (occurrence: None)
  Receive Date: 20080623
  Receipt Date: 20080618
  Transmission Date: 20081010
  Serious: Yes (Death, Other)
  Sender: FDA-Public Use
  Company Number: PHEH2007US13324

PATIENT
  Sex: Male
  Weight: 77.097 kg

DRUGS (20)
  1. EXJADE [Suspect]
     Indication: IRON OVERLOAD
     Dosage: 1200 MG/DAY
     Route: 048
     Dates: start: 20070926, end: 20071001
  2. EXJADE [Suspect]
     Indication: MYELODYSPLASTIC SYNDROME
     Dosage: 500 MG, QAM
     Route: 048
     Dates: start: 20071007, end: 20071010
  3. EXJADE [Suspect]
     Dosage: 500 MG, QD
     Route: 048
     Dates: start: 20071012, end: 20071031
  4. TRANSFUSIONS [Concomitant]
     Dates: start: 20070926
  5. MICRO-K [Concomitant]
     Dosage: 10 MEQ, QD
  6. PLAQUENIL [Concomitant]
     Dosage: 400 MG, QD
  7. CALCITRATE [Concomitant]
     Dosage: 600 MG, QD
  8. FOSAMAX PLUS D [Concomitant]
     Dosage: 70 MG, QW
  9. OXYCODONE HCL [Concomitant]
     Dosage: 5 MG, PRN
  10. ZINC [Concomitant]
     Dosage: 2 UNITS
  11. SEPTRA [Concomitant]
     Dosage: 400 MG, BID
     Route: 048
  12. ACIPHEX [Concomitant]
     Dosage: 20 MG, QD
     Route: 048
  13. DETROL [Concomitant]
     Dosage: 4 MG, QD
     Route: 048
  14. MULTI-VITAMIN [Concomitant]
     Dosage: UNK, QD
  15. AMBIEN [Concomitant]
     Dosage: 10 MG, QD
  16. FLOMAX [Concomitant]
     Dosage: 4 MG, QD
     Route: 048
  17. PREDNISONE TAB [Concomitant]
     Dosage: 30 MG, QD
  18. VITAMIN D [Concomitant]
     Dosage: 400 IU, QD
     Route: 048
  19. MICRO-K [Concomitant]
     Dosage: 10 MEQ, QD
     Route: 048
  20. SULFAMETHOXAZOLE AND TRIMETHOPRIM [Concomitant]
     Indication: WOUND INFECTION

REACTIONS (22)
  - ARTHRALGIA [None]
  - ASTHENIA [None]
  - CEREBRAL HAEMORRHAGE [None]
  - CHILLS [None]
  - CONDITION AGGRAVATED [None]
  - DIARRHOEA [None]
  - DRUG TOXICITY [None]
  - DYSAESTHESIA [None]
  - ERYTHEMA [None]
  - FATIGUE [None]
  - GAIT DISTURBANCE [None]
  - INFLUENZA LIKE ILLNESS [None]
  - MALAISE [None]
  - MYALGIA [None]
  - MYELODYSPLASTIC SYNDROME [None]
  - OEDEMA PERIPHERAL [None]
  - PERIORBITAL INFECTION [None]
  - PYREXIA [None]
  - RASH MACULAR [None]
  - TENDERNESS [None]
  - URINARY INCONTINENCE [None]
  - WEIGHT INCREASED [None]
